FAERS Safety Report 5099087-5 (Version None)
Quarter: 2006Q3

REPORT INFORMATION
  Report Type: 
  Country: None (occurrence: None)
  Receive Date: 20060731
  Receipt Date: 20060526
  Transmission Date: 20061208
  Serious: Yes (Hospitalization)
  Sender: FDA-Public Use
  Company Number: 224899

PATIENT
  Age: 79 Year
  Sex: Female

DRUGS (8)
  1. RITUXAN [Suspect]
     Indication: WALDENSTROM'S MACROGLOBULINAEMIA
     Dosage: 600 MG
     Dates: start: 20060126, end: 20060222
  2. LISINOPRIL [Concomitant]
  3. PREDNISONE TAB [Concomitant]
  4. ALLOPURINOL [Concomitant]
  5. BENADRYL [Concomitant]
  6. TYLENOL (CAPLET) [Concomitant]
  7. DECADRON [Concomitant]
  8. TAGAMET [Concomitant]

REACTIONS (1)
  - ATRIAL FIBRILLATION [None]
